FAERS Safety Report 11521889 (Version 1)
Quarter: 2015Q3

REPORT INFORMATION
  Report Type: Other
  Country: BR (occurrence: BR)
  Receive Date: 20150918
  Receipt Date: 20150918
  Transmission Date: 20151125
  Serious: Yes (Other)
  Sender: FDA-Public Use
  Company Number: BR-SHIRE-BR201511572

PATIENT
  Age: 25 Year
  Sex: Female

DRUGS (2)
  1. VENVANSE [Suspect]
     Active Substance: LISDEXAMFETAMINE DIMESYLATE
     Indication: ATTENTION DEFICIT/HYPERACTIVITY DISORDER
     Dosage: 50 MG, 1X/DAY:QD
     Route: 048
     Dates: start: 20101027
  2. RISPERDAL [Concomitant]
     Active Substance: RISPERIDONE
     Indication: ASPERGER^S DISORDER
     Dosage: 3 MG, UNKNOWN
     Route: 065

REACTIONS (5)
  - Disturbance in attention [Not Recovered/Not Resolved]
  - Learning disorder [Not Recovered/Not Resolved]
  - Autism [Not Recovered/Not Resolved]
  - Anxiety [Not Recovered/Not Resolved]
  - Depression [Not Recovered/Not Resolved]
